FAERS Safety Report 4491347-1 (Version None)
Quarter: 2004Q4

REPORT INFORMATION
  Report Type: 
  Country: None (occurrence: None)
  Receive Date: 20041101
  Receipt Date: 20041101
  Transmission Date: 20050328
  Serious: Yes (Death, Life-Threatening, Hospitalization, Disabling)
  Sender: FDA-Public Use
  Company Number: None

PATIENT
  Age: 71 Year
  Sex: Male
  Weight: 113.3993 kg

DRUGS (3)
  1. OCUVITE [Suspect]
     Indication: MACULAR DEGENERATION
     Dosage: 2 TABS BID
  2. RADIATION THERAPY [Concomitant]
  3. CHEMOTHERAPY [Concomitant]

REACTIONS (2)
  - HYPOGLYCAEMIA [None]
  - SMALL CELL LUNG CANCER STAGE UNSPECIFIED [None]
